FAERS Safety Report 12519723 (Version 3)
Quarter: 2016Q3

REPORT INFORMATION
  Report Type: Report from Study
  Country: CA (occurrence: CA)
  Receive Date: 20160630
  Receipt Date: 20160811
  Transmission Date: 20161109
  Serious: Yes (Other)
  Sender: FDA-Public Use
  Company Number: CA-JNJFOC-20160620889

PATIENT
  Age: 25 Year
  Sex: Female
  Weight: 55.5 kg

DRUGS (5)
  1. REMICADE [Suspect]
     Active Substance: INFLIXIMAB
     Indication: CROHN^S DISEASE
     Route: 042
     Dates: start: 20160720
  2. REMICADE [Suspect]
     Active Substance: INFLIXIMAB
     Indication: CROHN^S DISEASE
     Dosage: 26 TH INFUSION
     Route: 042
     Dates: start: 20160622
  3. REMICADE [Suspect]
     Active Substance: INFLIXIMAB
     Indication: CROHN^S DISEASE
     Route: 042
     Dates: start: 20140319
  4. IMURAN [Concomitant]
     Active Substance: AZATHIOPRINE
     Route: 048
  5. REMICADE [Suspect]
     Active Substance: INFLIXIMAB
     Indication: CROHN^S DISEASE
     Route: 042
     Dates: start: 20160525

REACTIONS (9)
  - Fistula [Not Recovered/Not Resolved]
  - Skin disorder [Not Recovered/Not Resolved]
  - General physical health deterioration [Unknown]
  - Drug effect decreased [Unknown]
  - Product use issue [Unknown]
  - Incision site pain [Recovered/Resolved]
  - Fistula discharge [Not Recovered/Not Resolved]
  - Abdominal pain [Not Recovered/Not Resolved]
  - Off label use [Unknown]

NARRATIVE: CASE EVENT DATE: 20140919
